FAERS Safety Report 7342654-6 (Version None)
Quarter: 2011Q1

REPORT INFORMATION
  Report Type: 
  Country: None (occurrence: None)
  Receive Date: 20110310
  Receipt Date: 20110210
  Transmission Date: 20110831
  Serious: Yes (Hospitalization, Other)
  Sender: FDA-Public Use
  Company Number: US-BAYER-201034478NA

PATIENT
  Sex: Female

DRUGS (4)
  1. RESTORIL [Concomitant]
     Indication: MENSTRUATION IRREGULAR
     Dosage: UNK
  2. YAZ [Suspect]
     Indication: PRODUCT USED FOR UNKNOWN INDICATION
     Route: 048
     Dates: start: 20080101
  3. CLARITIN [Concomitant]
     Dosage: 10 MG, QD
  4. KEPPRA [Concomitant]
     Dosage: 500 MG, BID

REACTIONS (6)
  - CHOLECYSTITIS CHRONIC [None]
  - ABDOMINAL PAIN UPPER [None]
  - BACK PAIN [None]
  - ABDOMINAL TENDERNESS [None]
  - NAUSEA [None]
  - CHOLELITHIASIS [None]
